FAERS Safety Report 16269589 (Version 3)
Quarter: 2019Q2

REPORT INFORMATION
  Report Type: Spontaneous
  Country: US (occurrence: US)
  Receive Date: 20190503
  Receipt Date: 20190624
  Transmission Date: 20190711
  Serious: Yes (Other)
  Sender: FDA-Public Use
  Company Number: US-PFIZER INC-2019180952

PATIENT
  Age: 77 Year
  Sex: Male
  Weight: 113 kg

DRUGS (2)
  1. LYRICA [Suspect]
     Active Substance: PREGABALIN
     Indication: NEUROPATHY PERIPHERAL
     Dosage: 1200 MG, DAILY (2 300MG CAPSULE BY MOUTH IN THE MORNING AND 2 300MG CAPSULE BY MOUTH AT NIGHT)
     Route: 048
  2. PERCOCET [Concomitant]
     Active Substance: ACETAMINOPHEN\OXYCODONE HYDROCHLORIDE
     Indication: PAIN
     Dosage: UNK (BUT IT IS A LOW DOSAGE)
     Dates: start: 201904

REACTIONS (7)
  - Frustration tolerance decreased [Unknown]
  - Overdose [Unknown]
  - Insomnia [Unknown]
  - Pain [Unknown]
  - Suicidal ideation [Unknown]
  - Amnesia [Unknown]
  - Crying [Unknown]
